FAERS Safety Report 6310987-8 (Version None)
Quarter: 2009Q3

REPORT INFORMATION
  Report Type: 
  Country: None (occurrence: None)
  Receive Date: 20090817
  Receipt Date: 20090806
  Transmission Date: 20100115
  Serious: Yes (Hospitalization, Other)
  Sender: FDA-Public Use
  Company Number: BR-BIOGENIDEC-2007BI016061

PATIENT
  Age: 55 Year
  Sex: Female
  Weight: 70 kg

DRUGS (5)
  1. AVONEX [Suspect]
     Indication: MULTIPLE SCLEROSIS
     Route: 030
     Dates: start: 20040801
  2. DEXTROMETHORPHAN HYDROBROMIDE [Concomitant]
     Indication: PAIN
  3. AMITRIPTYLINE [Concomitant]
     Indication: SLEEP DISORDER
     Route: 048
  4. PARACETAMOL [Concomitant]
     Indication: PAIN
  5. CORTICORTEN [Concomitant]
     Dates: start: 20050801

REACTIONS (2)
  - OSTEOARTHRITIS [None]
  - SYSTEMIC LUPUS ERYTHEMATOSUS [None]
